FAERS Safety Report 6396923-7 (Version None)
Quarter: 2009Q4

REPORT INFORMATION
  Report Type: 
  Country: None (occurrence: None)
  Receive Date: 20091012
  Receipt Date: 20090817
  Transmission Date: 20100525
  Serious: No
  Sender: FDA-Public Use
  Company Number: US-BAYER-200930567NA

PATIENT
  Sex: Female

DRUGS (1)
  1. MIRENA [Suspect]
     Indication: DRUG USE FOR UNKNOWN INDICATION
     Dosage: CONTINUOUS DELIVERY    (MIRENA INSERTED IN MAR OR APR-2009)
     Route: 015
     Dates: start: 20090301

REACTIONS (6)
  - AMENORRHOEA [None]
  - DIZZINESS [None]
  - HEADACHE [None]
  - MOTION SICKNESS [None]
  - VAGINAL HAEMORRHAGE [None]
  - VERTIGO [None]
